FAERS Safety Report 9717249 (Version 1)
Quarter: 2013Q4

REPORT INFORMATION
  Report Type: Spontaneous
  Country: CZ (occurrence: CZ)
  Receive Date: 20131127
  Receipt Date: 20131127
  Transmission Date: 20140711
  Serious: Yes (Other)
  Sender: FDA-Public Use
  Company Number: CZ-ACTAVIS-2013-21283

PATIENT
  Age: 65 Year
  Sex: Male

DRUGS (6)
  1. GABAPENTIN (UNKNOWN) [Suspect]
     Indication: NEUROPATHY PERIPHERAL
     Dosage: 600 MG, TID
     Route: 065
  2. GABAPENTIN (UNKNOWN) [Suspect]
     Dosage: 300 MG, TID
     Route: 065
  3. AMITRIPTYLINE [Suspect]
     Indication: NEUROPATHY PERIPHERAL
     Dosage: 25 MG, QPM
     Route: 065
  4. AMITRIPTYLINE [Suspect]
     Indication: PAIN IN EXTREMITY
     Dosage: 75 MG, UNK
     Route: 065
  5. FENTANYL [Suspect]
     Indication: NEUROPATHY PERIPHERAL
     Dosage: 25?G/H, CHANGED EVERY THREE DAYS
     Route: 062
  6. FENTANYL [Suspect]
     Indication: PAIN IN EXTREMITY

REACTIONS (4)
  - Hypertension [Recovering/Resolving]
  - Orthostatic hypotension [Unknown]
  - Visual impairment [Unknown]
  - Gastrointestinal disorder [Recovering/Resolving]
